FAERS Safety Report 12552305 (Version 1)
Quarter: 2016Q3

REPORT INFORMATION
  Report Type: Spontaneous
  Country: US (occurrence: None)
  Receive Date: 20160712
  Receipt Date: 20160712
  Transmission Date: 20161109
  Serious: Yes (Hospitalization, Other)
  Sender: FDA-Public Use
  Company Number: None

PATIENT
  Age: 75 Year
  Sex: Female

DRUGS (4)
  1. HYDROCHLOROTHIAZIDE. [Concomitant]
     Active Substance: HYDROCHLOROTHIAZIDE
  2. KEPPRA [Concomitant]
     Active Substance: LEVETIRACETAM
  3. TASIGNA [Suspect]
     Active Substance: NILOTINIB
     Indication: CHRONIC MYELOID LEUKAEMIA
     Dosage: 159 MG 1 CAPSULE TWICE DAILY ORAL
     Route: 048
     Dates: start: 20160510
  4. LOSARTAN. [Concomitant]
     Active Substance: LOSARTAN

REACTIONS (6)
  - Fatigue [None]
  - Insomnia [None]
  - Muscle spasms [None]
  - Hunger [None]
  - Hypertension [None]
  - Asthenia [None]

NARRATIVE: CASE EVENT DATE: 20160531
